FAERS Safety Report 15966214 (Version 3)
Quarter: 2019Q1

REPORT INFORMATION
  Report Type: Spontaneous
  Country: US (occurrence: US)
  Receive Date: 20190215
  Receipt Date: 20190304
  Transmission Date: 20190418
  Serious: No
  Sender: FDA-Public Use
  Company Number: US-EISAI MEDICAL RESEARCH-EC-2019-052005

PATIENT
  Age: 72 Year
  Sex: Male

DRUGS (2)
  1. LENVIMA [Suspect]
     Active Substance: LENVATINIB
     Route: 048
     Dates: start: 20190227
  2. LENVIMA [Suspect]
     Active Substance: LENVATINIB
     Indication: HEPATOCELLULAR CARCINOMA
     Route: 048
     Dates: start: 20190210, end: 20190218

REACTIONS (6)
  - Arthralgia [Recovering/Resolving]
  - Fatigue [Recovering/Resolving]
  - Dehydration [Not Recovered/Not Resolved]
  - Somnolence [Recovered/Resolved]
  - Headache [Not Recovered/Not Resolved]
  - Weight decreased [Recovering/Resolving]

NARRATIVE: CASE EVENT DATE: 201902
